FAERS Safety Report 23181061 (Version 1)
Quarter: 2023Q4

REPORT INFORMATION
  Report Type: Spontaneous
  Country: KR (occurrence: KR)
  Receive Date: 20231114
  Receipt Date: 20231114
  Transmission Date: 20240110
  Serious: Yes (Hospitalization, Other)
  Sender: FDA-Public Use
  Company Number: None

PATIENT
  Age: 59 Year
  Sex: Male
  Weight: 57.9 kg

DRUGS (9)
  1. CLOPIDOGREL BISULFATE [Suspect]
     Active Substance: CLOPIDOGREL BISULFATE
     Indication: Hyperlipidaemia
     Dosage: UNK UNK, BID
     Route: 048
     Dates: start: 20151224
  2. LACOSAMIDE [Suspect]
     Active Substance: LACOSAMIDE
     Dosage: 0.5 DF, QD
     Dates: start: 20180705, end: 20181209
  3. EZETIMIBE [Suspect]
     Active Substance: EZETIMIBE
     Dosage: 1 DF, BID
     Dates: start: 20181210
  4. LEVETIRACETAM [Suspect]
     Active Substance: LEVETIRACETAM
     Indication: Epilepsy
     Dosage: UNK UNK, BID
     Dates: start: 20150910
  5. TRIMETAZIDINE DIHYDROCHLORIDE [Suspect]
     Active Substance: TRIMETAZIDINE DIHYDROCHLORIDE
     Indication: Angina pectoris
     Dosage: 17.5 MG, BID
     Dates: start: 20170417
  6. LEVACECARNINE HYDROCHLORIDE [Suspect]
     Active Substance: LEVACECARNINE HYDROCHLORIDE
     Indication: Ill-defined disorder
     Dosage: UNK UNK, BID
     Dates: start: 20170417
  7. PELUBIPROFEN [Suspect]
     Active Substance: PELUBIPROFEN
     Indication: Arthralgia
     Dosage: UNK UNK, BID
     Dates: start: 20181025
  8. ATORVASTATIN CALCIUM [Concomitant]
     Active Substance: ATORVASTATIN CALCIUM
     Indication: Hyperlipidaemia
     Dosage: UNK UNK, QD
     Dates: start: 20180705
  9. DULOXETINE HYDROCHLORIDE [Concomitant]
     Active Substance: DULOXETINE HYDROCHLORIDE
     Indication: Depression
     Dosage: UNK
     Dates: start: 20151025

REACTIONS (1)
  - Cerebral infarction [Recovered/Resolved]

NARRATIVE: CASE EVENT DATE: 20181119
